FAERS Safety Report 9302108 (Version 2)
Quarter: 2013Q3

REPORT INFORMATION
  Report Type: Spontaneous
  Country: AU (occurrence: AU)
  Receive Date: 20130521
  Receipt Date: 20130703
  Transmission Date: 20140515
  Serious: Yes (Hospitalization, Other)
  Sender: FDA-Public Use
  Company Number: AU-B.I. PHARMACEUTICALS,INC./RIDGEFIELD-2013-AU-00570AU

PATIENT
  Age: 76 Year
  Sex: Male
  Weight: 97 kg

DRUGS (9)
  1. PRADAXA [Suspect]
     Indication: ATRIAL FIBRILLATION
     Dosage: 220 MG
     Dates: start: 201212, end: 20130319
  2. PRADAXA [Suspect]
     Dosage: 300 MG
     Dates: start: 20110811, end: 201212
  3. CARVEDILOL [Concomitant]
  4. IRBESARTAN [Concomitant]
  5. ISOSORBIDE MONONITRATE [Concomitant]
  6. FRUSEMIDE [Concomitant]
  7. ALLOPURINOL [Concomitant]
  8. CRESTOR [Concomitant]
  9. SPIRONOLACTONE [Concomitant]

REACTIONS (4)
  - Pulmonary embolism [Recovered/Resolved]
  - Cardiac failure congestive [Unknown]
  - Renal impairment [Unknown]
  - Dyspnoea [Unknown]
